FAERS Safety Report 10401812 (Version 1)
Quarter: 2014Q3

REPORT INFORMATION
  Report Type: Report from Study
  Country: US (occurrence: US)
  Receive Date: 20140822
  Receipt Date: 20140822
  Transmission Date: 20150326
  Serious: Yes (Other)
  Sender: FDA-Public Use
  Company Number: US-ROCHE-1451899

PATIENT
  Age: 50 Year
  Sex: Female

DRUGS (1)
  1. CELLCEPT [Suspect]
     Active Substance: MYCOPHENOLATE MOFETIL\MYCOPHENOLATE MOFETIL HYDROCHLORIDE
     Indication: PRODUCT USED FOR UNKNOWN INDICATION
     Route: 065

REACTIONS (19)
  - Arthralgia [Unknown]
  - Haematuria [Unknown]
  - Full blood count increased [Unknown]
  - Decreased appetite [Unknown]
  - Night sweats [Unknown]
  - Antinuclear antibody increased [Unknown]
  - Hypoaesthesia [Unknown]
  - Fatigue [Unknown]
  - Blood creatinine increased [Unknown]
  - Rheumatoid factor increased [Unknown]
  - Dyspnoea [Unknown]
  - Antineutrophil cytoplasmic antibody increased [Unknown]
  - Glomerulonephritis [Unknown]
  - Sinusitis [Unknown]
  - Rash [Unknown]
  - Depression [Unknown]
  - Haemoglobin decreased [Unknown]
  - Asthenia [Unknown]
  - Weight decreased [Unknown]
